FAERS Safety Report 7739774-0 (Version None)
Quarter: 2011Q3

REPORT INFORMATION
  Report Type: 
  Country: None (occurrence: None)
  Receive Date: 20110909
  Receipt Date: 20110829
  Transmission Date: 20111222
  Serious: Yes (Hospitalization)
  Sender: FDA-Public Use
  Company Number: US-BAYER-2011-009724

PATIENT
  Age: 25 Year
  Sex: Female
  Weight: 76.19 kg

DRUGS (13)
  1. HYOMAX-SL [Concomitant]
  2. CELEXA [Concomitant]
  3. HYDROCODONE BITARTRATE AND ACETAMINOPHEN [Concomitant]
  4. YASMIN [Suspect]
     Indication: PREMENSTRUAL SYNDROME
     Dosage: UNK
     Dates: start: 20071026, end: 20080527
  5. CITALOPRAM HYDROBROMIDE [Concomitant]
     Indication: DEPRESSION
  6. GLUCOPHAGE [Concomitant]
  7. YAZ [Suspect]
     Indication: PREMENSTRUAL SYNDROME
     Dosage: UNK
  8. ACTOS [Concomitant]
  9. LEVSIN [Concomitant]
  10. FLUCONAZOLE [Concomitant]
  11. DROSPIRENONE AND ETHINYL ESTRADIOL [Suspect]
     Indication: PREMENSTRUAL SYNDROME
     Dosage: UNK
     Dates: start: 20080717, end: 20091103
  12. PHENERGAN HCL [Concomitant]
  13. CATAFLAM [Concomitant]

REACTIONS (5)
  - GALLBLADDER INJURY [None]
  - BILIARY DYSKINESIA [None]
  - CHOLELITHIASIS [None]
  - PAIN [None]
  - EMOTIONAL DISTRESS [None]
